FAERS Safety Report 8661260 (Version 2)
Quarter: 2013Q4

REPORT INFORMATION
  Report Type: Spontaneous
  Country: SE (occurrence: SE)
  Receive Date: 20120712
  Receipt Date: 20131031
  Transmission Date: 20140711
  Serious: Yes (Other)
  Sender: FDA-Public Use
  Company Number: SE-009507513-1207SWE000050

PATIENT
  Sex: Male

DRUGS (1)
  1. SINEMET [Suspect]
     Indication: NEUROLOGICAL SYMPTOM
     Dosage: UNK
     Route: 048

REACTIONS (1)
  - Epilepsy [Unknown]
